FAERS Safety Report 16776863 (Version 7)
Quarter: 2020Q1

REPORT INFORMATION
  Report Type: Spontaneous
  Country: JP (occurrence: JP)
  Receive Date: 20190905
  Receipt Date: 20200127
  Transmission Date: 20200409
  Serious: Yes (Death, Hospitalization, Other)
  Sender: FDA-Public Use
  Company Number: JP-BRISTOL-MYERS SQUIBB COMPANY-BMS-2019-085933

PATIENT
  Age: 79 Year
  Sex: Male
  Weight: 44.1 kg

DRUGS (1)
  1. OPDIVO [Suspect]
     Active Substance: NIVOLUMAB
     Indication: GASTRIC CANCER
     Dosage: UNK
     Route: 041
     Dates: start: 20190822, end: 20190905

REACTIONS (7)
  - Candida infection [Unknown]
  - Pyrexia [Unknown]
  - Malignant neoplasm progression [Fatal]
  - Oesophageal stent stenosis [Recovered/Resolved]
  - Pneumonia aspiration [Not Recovered/Not Resolved]
  - Vascular device infection [Not Recovered/Not Resolved]
  - Drug-device incompatibility [Unknown]

NARRATIVE: CASE EVENT DATE: 20190827
